FAERS Safety Report 6250107-1 (Version None)
Quarter: 2009Q2

REPORT INFORMATION
  Report Type: 
  Country: None (occurrence: None)
  Receive Date: 20090626
  Receipt Date: 20090611
  Transmission Date: 20091009
  Serious: Yes (Hospitalization)
  Sender: FDA-Public Use
  Company Number: ABX40-09-0284

PATIENT
  Age: 51 Year
  Sex: Female

DRUGS (11)
  1. ABRAXANE [Suspect]
     Indication: BREAST CANCER
     Dosage: INTRAVENOUS
     Route: 042
  2. CYCLOPHOSPHAMIDE [Suspect]
     Indication: BREAST CANCER
  3. ADRIAMYCIN PFS [Suspect]
     Indication: BREAST CANCER
  4. BEVACIZUMAB (BEVACIZUMAB) [Suspect]
     Indication: BREAST CANCER
     Dates: end: 20070727
  5. ACETAMINOPHEN [Concomitant]
  6. CEFAZOLIN SODIUM [Concomitant]
  7. LORAZEPAM [Concomitant]
  8. METOCLOPRAMIDE [Concomitant]
  9. NORTRIPTYLINE HCL [Concomitant]
  10. PERCOGESIC (PERCOGESIC) [Concomitant]
  11. TAMOXIFEN CITRATE [Concomitant]

REACTIONS (2)
  - WOUND COMPLICATION [None]
  - WOUND INFECTION [None]
